FAERS Safety Report 8090772-X (Version None)
Quarter: 2012Q1

REPORT INFORMATION
  Report Type: 
  Country: None (occurrence: None)
  Receive Date: 20120125
  Receipt Date: 20120112
  Transmission Date: 20120608
  Serious: Yes (Other)
  Sender: FDA-Public Use
  Company Number: 2012P1002438

PATIENT
  Age: 83 Year
  Sex: Female

DRUGS (5)
  1. CITALOPRAM HYDROBROMIDE [Suspect]
     Dosage: 20 MG
  2. AMIODARONE HCL [Suspect]
     Dosage: 200 MG
  3. LERCANIDIPINE [Concomitant]
  4. LOSARTAN POTASSIUM [Concomitant]
  5. FLUINDIONE [Concomitant]

REACTIONS (7)
  - TORSADE DE POINTES [None]
  - PALPITATIONS [None]
  - VENTRICULAR EXTRASYSTOLES [None]
  - DIZZINESS [None]
  - HYPOKALAEMIA [None]
  - LEFT VENTRICULAR HYPERTROPHY [None]
  - MITRAL VALVE INCOMPETENCE [None]
